FAERS Safety Report 6157336-6 (Version None)
Quarter: 2009Q2

REPORT INFORMATION
  Report Type: 
  Country: None (occurrence: None)
  Receive Date: 20090416
  Receipt Date: 20090406
  Transmission Date: 20091009
  Serious: Yes (Life-Threatening, Hospitalization)
  Sender: FDA-Public Use
  Company Number: DE-PURDUE-DEU_2009_0005168

PATIENT
  Age: 22 Year
  Sex: Female
  Weight: 57 kg

DRUGS (6)
  1. OXYGESIC 10 MG [Suspect]
     Indication: PAIN
     Dosage: 10 MG, TID
     Route: 048
     Dates: start: 20090130, end: 20090210
  2. BERLOSIN [Concomitant]
  3. CLEXANE [Concomitant]
     Dosage: UNK, UNK
  4. PANTOZOL                           /01263202/ [Suspect]
     Indication: PROPHYLAXIS AGAINST GASTROINTESTINAL ULCER
     Route: 048
     Dates: start: 20090121, end: 20090210
  5. VOLTAREN                           /00372304/ [Suspect]
     Indication: PAIN
     Route: 054
     Dates: start: 20090130, end: 20090210
  6. IBUPROFEN [Concomitant]

REACTIONS (1)
  - HEPATITIS FULMINANT [None]
